FAERS Safety Report 6436275-7 (Version None)
Quarter: 2009Q4

REPORT INFORMATION
  Report Type: 
  Country: None (occurrence: None)
  Receive Date: 20091111
  Receipt Date: 20091105
  Transmission Date: 20100525
  Serious: Yes (Hospitalization)
  Sender: FDA-Public Use
  Company Number: A0815394A

PATIENT
  Age: 77 Year
  Sex: Female

DRUGS (6)
  1. ADVAIR DISKUS 100/50 [Suspect]
     Indication: ASTHMA
     Route: 055
     Dates: start: 20000101
  2. HUMALOG [Concomitant]
  3. SYNTHROID [Concomitant]
  4. BUMEX [Concomitant]
  5. LIPITOR [Concomitant]
  6. ZANTAC [Concomitant]

REACTIONS (2)
  - LOSS OF CONSCIOUSNESS [None]
  - PNEUMONIA [None]
